FAERS Safety Report 21513883 (Version 1)
Quarter: 2022Q4

REPORT INFORMATION
  Report Type: Report from Study
  Country: JP (occurrence: JP)
  Receive Date: 20221027
  Receipt Date: 20221027
  Transmission Date: 20230113
  Serious: Yes (Hospitalization)
  Sender: FDA-Public Use
  Company Number: JP-SERVIER-S20013730

PATIENT

DRUGS (11)
  1. AZACITIDINE [Suspect]
     Active Substance: AZACITIDINE
     Indication: Acute myeloid leukaemia
     Dosage: 142 MG, ON DAYS 1-5 AND 8-9 OF EACH 28-DAY CYCLE
     Route: 058
     Dates: start: 20200420, end: 20210614
  2. AZACITIDINE [Suspect]
     Active Substance: AZACITIDINE
     Dosage: 65 MG, DAILY
     Route: 058
     Dates: start: 20210831, end: 20210906
  3. AZACITIDINE [Suspect]
     Active Substance: AZACITIDINE
     Dosage: 65 MG, DAILY
     Route: 058
     Dates: start: 20210928, end: 20211004
  4. AZACITIDINE [Suspect]
     Active Substance: AZACITIDINE
     Dosage: 64 MG, DAILY
     Route: 058
     Dates: start: 20211026, end: 20211101
  5. PIRENOXINE [Concomitant]
     Active Substance: PIRENOXINE
     Indication: Cataract
     Dosage: 0.5 ML, BID
     Route: 047
  6. ROSUVASTATIN CALCIUM [Concomitant]
     Active Substance: ROSUVASTATIN CALCIUM
     Indication: Dyslipidaemia
     Dosage: 2.5 MG, DAILY
     Route: 048
  7. VONOPRAZAN [Concomitant]
     Active Substance: VONOPRAZAN
     Indication: Gastrooesophageal reflux disease
     Dosage: 20 MG, DAILY
     Route: 048
  8. ESZOPICLONE [Concomitant]
     Active Substance: ESZOPICLONE
     Indication: Insomnia
     Dosage: 1 MG, PRN
     Route: 048
     Dates: start: 20200429, end: 20201030
  9. MAGNESIUM OXIDE [Concomitant]
     Active Substance: MAGNESIUM OXIDE
     Indication: Constipation
     Dosage: 330 MG, TID
     Route: 048
     Dates: start: 20200506, end: 20201004
  10. FEBUXOSTAT [Concomitant]
     Active Substance: FEBUXOSTAT
     Indication: Hyperuricaemia
     Dosage: 20 MG, DAILY
     Route: 048
     Dates: start: 20200623, end: 20210315
  11. SENNOSIDES A AND B [Concomitant]
     Active Substance: SENNOSIDES A AND B
     Indication: Constipation
     Dosage: 24 MG, PRN
     Route: 048
     Dates: start: 20200703, end: 20200909

REACTIONS (3)
  - Differentiation syndrome [Recovered/Resolved]
  - Febrile neutropenia [Recovered/Resolved]
  - Electrocardiogram QT prolonged [Recovered/Resolved]

NARRATIVE: CASE EVENT DATE: 20200725
